FAERS Safety Report 11584137 (Version 1)
Quarter: 2015Q4

REPORT INFORMATION
  Report Type: Spontaneous
  Country: GB (occurrence: GB)
  Receive Date: 20151001
  Receipt Date: 20151001
  Transmission Date: 20160304
  Serious: Yes (Hospitalization, Other)
  Sender: FDA-Public Use
  Company Number: GB-SUN PHARMACEUTICAL INDUSTRIES LTD-2015RR-103747

PATIENT

DRUGS (3)
  1. OXALIPLATIN. [Suspect]
     Active Substance: OXALIPLATIN
     Indication: CHEMOTHERAPY
     Dosage: 100 MG, UNK
     Route: 042
     Dates: start: 20150909, end: 20150909
  2. FOLINIC ACID [Concomitant]
     Active Substance: LEUCOVORIN
     Indication: CHEMOTHERAPY
     Route: 042
  3. FLUOROURACIL. [Concomitant]
     Active Substance: FLUOROURACIL
     Indication: CHEMOTHERAPY
     Route: 042

REACTIONS (7)
  - Tachycardia [Recovered/Resolved]
  - Oxygen saturation decreased [Recovered/Resolved]
  - Paraesthesia oral [Recovered/Resolved]
  - Malaise [Recovered/Resolved]
  - Seizure [Recovered/Resolved]
  - Flushing [Recovered/Resolved]
  - Heart rate decreased [Recovered/Resolved]

NARRATIVE: CASE EVENT DATE: 20150909
